FAERS Safety Report 4360852-0 (Version None)
Quarter: 2004Q2

REPORT INFORMATION
  Report Type: 
  Country: None (occurrence: None)
  Receive Date: 20040517
  Receipt Date: 20040510
  Transmission Date: 20050107
  Serious: Yes (Hospitalization)
  Sender: FDA-Public Use
  Company Number: 2004PK00840

PATIENT
  Age: 79 Year
  Sex: Female
  Weight: 52 kg

DRUGS (6)
  1. METOPROLOL SUCCINATE [Suspect]
     Indication: HYPERTENSION
     Dosage: 47.5 MG BID PO
     Route: 048
     Dates: start: 20030501
  2. ACTRAPHANE HM [Suspect]
     Indication: DIABETES MELLITUS
     Dosage: 46 IU DAILY SQ
     Route: 058
     Dates: start: 20030501
  3. ENALAPRIL MALEATE [Suspect]
     Indication: HYPERTENSION
     Dosage: 19 MG BID PO
     Route: 048
     Dates: start: 20030501
  4. DIGITOXIN TAB [Concomitant]
  5. METHYLPREDNISOLON ^JENAPHARM^ [Concomitant]
  6. PANTOZOL [Concomitant]

REACTIONS (2)
  - DRUG INTERACTION [None]
  - HYPOGLYCAEMIA [None]
